FAERS Safety Report 6104900-6 (Version None)
Quarter: 2009Q1

REPORT INFORMATION
  Report Type: 
  Country: None (occurrence: None)
  Receive Date: 20090304
  Receipt Date: 20090218
  Transmission Date: 20090719
  Serious: Yes (Death, Life-Threatening, Hospitalization)
  Sender: FDA-Public Use
  Company Number: 2009PL000052

PATIENT
  Age: 57 Year
  Sex: Male
  Weight: 81.1939 kg

DRUGS (3)
  1. ZYLOPRIM [Suspect]
     Indication: PROPHYLAXIS
     Dosage: 100 MG; QD
     Dates: start: 20080925, end: 20081008
  2. ZYLOPRIM [Suspect]
     Indication: TUMOUR LYSIS SYNDROME
     Dosage: 100 MG; QD
     Dates: start: 20080925, end: 20081008
  3. TREANDA [Suspect]
     Indication: CHRONIC LYMPHOCYTIC LEUKAEMIA
     Dosage: 200 MG; IV
     Route: 042
     Dates: start: 20081006, end: 20081007

REACTIONS (27)
  - ALANINE AMINOTRANSFERASE INCREASED [None]
  - ASPARTATE AMINOTRANSFERASE INCREASED [None]
  - ATELECTASIS [None]
  - BILIRUBIN CONJUGATED ABNORMAL [None]
  - BLOOD CHLORIDE INCREASED [None]
  - BLOOD GLUCOSE INCREASED [None]
  - BLOOD PRESSURE SYSTOLIC INCREASED [None]
  - BLOOD SODIUM INCREASED [None]
  - BODY TEMPERATURE INCREASED [None]
  - CHOLELITHIASIS [None]
  - COLITIS ULCERATIVE [None]
  - DIARRHOEA [None]
  - HAEMOGLOBIN DECREASED [None]
  - HYPOALBUMINAEMIA [None]
  - HYPOTENSION [None]
  - HYPOVOLAEMIA [None]
  - INTERNATIONAL NORMALISED RATIO INCREASED [None]
  - PLATELET COUNT DECREASED [None]
  - PROTEIN TOTAL DECREASED [None]
  - RENAL FAILURE [None]
  - SPLENOMEGALY [None]
  - STAPHYLOCOCCAL BACTERAEMIA [None]
  - STEVENS-JOHNSON SYNDROME [None]
  - TACHYCARDIA [None]
  - URINARY TRACT INFECTION PSEUDOMONAL [None]
  - WEIGHT DECREASED [None]
  - WHITE BLOOD CELL COUNT DECREASED [None]
